FAERS Safety Report 21041171 (Version 1)
Quarter: 2022Q3

REPORT INFORMATION
  Report Type: Spontaneous
  Country: DK (occurrence: DK)
  Receive Date: 20220705
  Receipt Date: 20220705
  Transmission Date: 20221027
  Serious: Yes (Death, Hospitalization, Other)
  Sender: FDA-Public Use
  Company Number: None

PATIENT
  Age: 76 Year
  Sex: Male

DRUGS (3)
  1. SPRYCEL [Suspect]
     Active Substance: DASATINIB
     Indication: Chronic myeloid leukaemia
     Dosage: DOSE AND STRENGTH: UNKNOWN
     Route: 065
     Dates: start: 201706
  2. ICLUSIG [Suspect]
     Active Substance: PONATINIB
     Indication: Chronic myeloid leukaemia
     Dosage: DOSE AND STRENGTH: UNKNOWN. ?INCREASED MAR2018, REDUCED AUG2019
     Route: 065
     Dates: end: 201912
  3. WARFARIN SODIUM [Concomitant]
     Active Substance: WARFARIN SODIUM
     Indication: Anticoagulant therapy
     Dosage: DOSE AND STRENGTH: UNKNOWN
     Route: 065
     Dates: start: 2017, end: 20191212

REACTIONS (7)
  - Muscle spasms [Fatal]
  - Confusional state [Fatal]
  - Cerebral thrombosis [Fatal]
  - Delirium [Fatal]
  - Visual impairment [Fatal]
  - Clonic convulsion [Fatal]
  - Pneumonia [Fatal]

NARRATIVE: CASE EVENT DATE: 20190801
